FAERS Safety Report 25655546 (Version 1)
Quarter: 2025Q3

REPORT INFORMATION
  Report Type: Report from Study
  Country: PA (occurrence: PA)
  Receive Date: 20250807
  Receipt Date: 20250807
  Transmission Date: 20251021
  Serious: Yes (Other)
  Sender: NOVARTIS
  Company Number: PA-002147023-NVSC2025PA124853

PATIENT
  Sex: Male

DRUGS (2)
  1. SACUBITRIL\VALSARTAN [Suspect]
     Active Substance: SACUBITRIL\VALSARTAN
     Indication: Cardiac failure
     Route: 048
  2. SACUBITRIL\VALSARTAN [Suspect]
     Active Substance: SACUBITRIL\VALSARTAN
     Route: 048

REACTIONS (1)
  - Ill-defined disorder [Unknown]
